FAERS Safety Report 25266617 (Version 1)
Quarter: 2025Q2

REPORT INFORMATION
  Report Type: Spontaneous
  Country: US (occurrence: US)
  Receive Date: 20250505
  Receipt Date: 20250505
  Transmission Date: 20250716
  Serious: No
  Sender: BIONPHARMA INC.
  Company Number: US-Bion-014907

PATIENT
  Sex: Female

DRUGS (2)
  1. IBUPROFEN [Suspect]
     Active Substance: IBUPROFEN
     Indication: Headache
     Dates: start: 20250421
  2. IBUPROFEN [Suspect]
     Active Substance: IBUPROFEN
     Indication: Muscle spasms
     Dates: start: 20250421

REACTIONS (2)
  - Product taste abnormal [Unknown]
  - Drug ineffective [Not Recovered/Not Resolved]
